FAERS Safety Report 4275377-0 (Version None)
Quarter: 2004Q1

REPORT INFORMATION
  Report Type: 
  Country: None (occurrence: None)
  Receive Date: 20040116
  Receipt Date: 20040108
  Transmission Date: 20041129
  Serious: Yes (Death)
  Sender: FDA-Public Use
  Company Number: KII-2000-0006419

PATIENT
  Sex: Male

DRUGS (2)
  1. OXYCONTIN [Suspect]
     Indication: CANCER PAIN
     Dosage: 320 MG, Q 12H
  2. OXYFAST CONCENTRATE 20 MG/ML (OXYCODONE HYDROCHLORIDE) ORAL SOLUTION [Suspect]
     Indication: CANCER PAIN

REACTIONS (1)
  - DEATH [None]
